FAERS Safety Report 5529651-8 (Version None)
Quarter: 2007Q4

REPORT INFORMATION
  Report Type: 
  Country: None (occurrence: None)
  Receive Date: 20071129
  Receipt Date: 20071119
  Transmission Date: 20080405
  Serious: Yes (Other)
  Sender: FDA-Public Use
  Company Number: SE-PFIZER INC-2007097240

PATIENT
  Age: 86 Year
  Sex: Female

DRUGS (4)
  1. DALACIN [Suspect]
     Indication: STAPHYLOCOCCAL INFECTION
  2. TROMBYL [Concomitant]
  3. LASIX [Concomitant]
  4. HERACILLIN [Concomitant]

REACTIONS (3)
  - DIZZINESS [None]
  - HALLUCINATION [None]
  - NAUSEA [None]
